FAERS Safety Report 7293914-9 (Version None)
Quarter: 2011Q1

REPORT INFORMATION
  Report Type: 
  Country: None (occurrence: None)
  Receive Date: 20110215
  Receipt Date: 20110204
  Transmission Date: 20110831
  Serious: Yes (Other)
  Sender: FDA-Public Use
  Company Number: US-JNJFOC-20110202548

PATIENT
  Sex: Female
  Weight: 98.88 kg

DRUGS (4)
  1. SIMPONI [Suspect]
     Indication: RHEUMATOID ARTHRITIS
     Route: 058
  2. MEDICATION FOR RHEUMATOID ARTHRITIS [Concomitant]
     Indication: RHEUMATOID ARTHRITIS
     Route: 048
  3. LISINOPRIL [Concomitant]
     Indication: BLOOD PRESSURE
     Route: 048
  4. PREDNISONE TAB [Concomitant]
     Indication: RHEUMATOID ARTHRITIS
     Route: 048

REACTIONS (3)
  - TYPE 2 DIABETES MELLITUS [None]
  - DRUG DOSE OMISSION [None]
  - DEVICE MALFUNCTION [None]
